FAERS Safety Report 18738444 (Version 1)
Quarter: 2021Q1

REPORT INFORMATION
  Report Type: Spontaneous
  Country: CA (occurrence: CA)
  Receive Date: 20210114
  Receipt Date: 20210114
  Transmission Date: 20210419
  Serious: Yes (Other)
  Sender: FDA-Public Use
  Company Number: CA-ASTRAZENECA-2020SF11577

PATIENT
  Age: 61 Year
  Sex: Male
  Weight: 35 kg

DRUGS (5)
  1. CRESTOR [Suspect]
     Active Substance: ROSUVASTATIN CALCIUM
     Dosage: UNKNOWN
     Route: 048
  2. OMEGA ? 3 [Concomitant]
  3. AMLODIPINE [Concomitant]
     Active Substance: AMLODIPINE BESYLATE
  4. VITAMIN D [Concomitant]
     Active Substance: VITAMIN D NOS
  5. TAMSULOSIN CR [Concomitant]
     Active Substance: TAMSULOSIN

REACTIONS (2)
  - Gilbert^s syndrome [Recovered/Resolved]
  - Myalgia [Recovered/Resolved]
